FAERS Safety Report 12874515 (Version 1)
Quarter: 2016Q4

REPORT INFORMATION
  Report Type: Spontaneous
  Country: BR (occurrence: BR)
  Receive Date: 20161021
  Receipt Date: 20161021
  Transmission Date: 20170207
  Serious: Yes (Hospitalization, Other)
  Sender: FDA-Public Use
  Company Number: BR-009507513-1610BRA011588

PATIENT
  Age: 61 Year
  Sex: Male
  Weight: 90 kg

DRUGS (10)
  1. GARDENAL [Concomitant]
     Active Substance: PHENOBARBITAL
     Indication: CEREBRAL DISORDER
     Dosage: 150 MG, QD
     Route: 048
     Dates: start: 1974
  2. HIDANTAL [Concomitant]
     Active Substance: PHENYTOIN SODIUM
     Indication: CEREBRAL DISORDER
     Dosage: 200 MG, QD
     Route: 048
     Dates: start: 1974
  3. CARDIZEM [Concomitant]
     Active Substance: DILTIAZEM HYDROCHLORIDE
     Indication: HYPERTENSION
     Dosage: 120 MG, QD
     Route: 048
  4. HIDANTAL [Concomitant]
     Active Substance: PHENYTOIN SODIUM
     Indication: CONVULSION PROPHYLAXIS
  5. DOPAMINE [Concomitant]
     Active Substance: DOPAMINE\DOPAMINE HYDROCHLORIDE
     Dosage: 1 DF, QD
     Route: 048
  6. JANUMET [Suspect]
     Active Substance: METFORMIN HYDROCHLORIDE\SITAGLIPTIN PHOSPHATE
     Indication: DIABETES MELLITUS
     Dosage: 50/1000 MG, BID
     Route: 048
     Dates: start: 2014
  7. JANUMET [Suspect]
     Active Substance: METFORMIN HYDROCHLORIDE\SITAGLIPTIN PHOSPHATE
     Dosage: 50/1000 MG, BID
     Route: 048
     Dates: start: 201609, end: 20161014
  8. METFORMIN [Suspect]
     Active Substance: METFORMIN HYDROCHLORIDE
  9. SPIRONOLACTONE. [Concomitant]
     Active Substance: SPIRONOLACTONE
     Dosage: 20 MG, QD
  10. GARDENAL [Concomitant]
     Active Substance: PHENOBARBITAL
     Indication: CONVULSION PROPHYLAXIS

REACTIONS (19)
  - Nephrolithiasis [Recovered/Resolved]
  - Hypoaesthesia [Recovered/Resolved]
  - Hepatomegaly [Not Recovered/Not Resolved]
  - Limb discomfort [Not Recovered/Not Resolved]
  - Abdominal pain upper [Recovered/Resolved]
  - Malaise [Recovered/Resolved]
  - Paraesthesia [Recovered/Resolved]
  - Necrosis [Unknown]
  - Malaise [Unknown]
  - Hyperhidrosis [Recovered/Resolved]
  - Muscle atrophy [Not Recovered/Not Resolved]
  - Cardiac failure congestive [Unknown]
  - Swelling [Not Recovered/Not Resolved]
  - Abdominal distension [Recovered/Resolved]
  - Neuropathy peripheral [Not Recovered/Not Resolved]
  - Peripheral swelling [Recovered/Resolved]
  - Joint swelling [Recovered/Resolved]
  - Abdominal distension [Recovering/Resolving]
  - Hypoaesthesia [Recovered/Resolved]

NARRATIVE: CASE EVENT DATE: 2014
